FAERS Safety Report 18909035 (Version 3)
Quarter: 2021Q1

REPORT INFORMATION
  Report Type: Report from Study
  Country: BR (occurrence: BR)
  Receive Date: 20210218
  Receipt Date: 20210316
  Transmission Date: 20210420
  Serious: Yes (Other)
  Sender: FDA-Public Use
  Company Number: BR-UCBSA-2021007209

PATIENT
  Age: 65 Year
  Sex: Female
  Weight: 77 kg

DRUGS (1)
  1. CERTOLIZUMAB PEGOL RA [Suspect]
     Active Substance: CERTOLIZUMAB PEGOL
     Indication: RHEUMATOID ARTHRITIS
     Dosage: UNK UNK, MONTHLY (QM)
     Route: 058
     Dates: start: 202003, end: 2021

REACTIONS (3)
  - Sinusitis [Unknown]
  - Rhinitis [Unknown]
  - Epistaxis [Recovered/Resolved]

NARRATIVE: CASE EVENT DATE: 20210205
